FAERS Safety Report 13171987 (Version 2)
Quarter: 2017Q1

REPORT INFORMATION
  Report Type: Spontaneous
  Country: US (occurrence: US)
  Receive Date: 20170201
  Receipt Date: 20170216
  Transmission Date: 20170428
  Serious: No
  Sender: FDA-Public Use
  Company Number: US-PFIZER INC-2017041170

PATIENT
  Sex: Female

DRUGS (1)
  1. XELJANZ [Suspect]
     Active Substance: TOFACITINIB CITRATE
     Dosage: 5 MG, UNK

REACTIONS (14)
  - Joint range of motion decreased [Unknown]
  - Musculoskeletal pain [Unknown]
  - Crepitations [Unknown]
  - Peripheral swelling [Unknown]
  - Dry mouth [Unknown]
  - Soft tissue mass [Unknown]
  - Synovitis [Unknown]
  - Dry eye [Unknown]
  - Hyperkeratosis [Unknown]
  - Paraesthesia [Unknown]
  - Musculoskeletal stiffness [Unknown]
  - Restless legs syndrome [Unknown]
  - Arthralgia [Unknown]
  - Kyphosis [Unknown]
